FAERS Safety Report 4639328-9 (Version None)
Quarter: 2005Q2

REPORT INFORMATION
  Report Type: 
  Country: None (occurrence: None)
  Receive Date: 20050418
  Receipt Date: 20050405
  Transmission Date: 20051028
  Serious: Yes (Other)
  Sender: FDA-Public Use
  Company Number: 2005055673

PATIENT
  Age: 77 Year
  Sex: Female

DRUGS (6)
  1. AZITHROMYCIN [Suspect]
     Indication: COUGH
     Dosage: (250 MG), ORAL
     Route: 048
     Dates: start: 20050301, end: 20050301
  2. AZITHROMYCIN [Suspect]
     Indication: PYREXIA
     Dosage: (250 MG), ORAL
     Route: 048
     Dates: start: 20050301, end: 20050301
  3. VITAMINS (VITAMINS) [Suspect]
     Indication: ILL-DEFINED DISORDER
  4. NADOLOL [Concomitant]
  5. ENALAPRIL MALEATE [Concomitant]
  6. GLICLAZIDE (GLICLAZIDE) [Concomitant]

REACTIONS (6)
  - ASTHENIA [None]
  - DIARRHOEA [None]
  - DRUG INTERACTION [None]
  - EATING DISORDER [None]
  - VOMITING [None]
  - WEIGHT DECREASED [None]
